FAERS Safety Report 8645632 (Version 3)
Quarter: 2012Q4

REPORT INFORMATION
  Report Type: 
  Country: LB (occurrence: LB)
  Receive Date: 20120702
  Receipt Date: 20121122
  Transmission Date: 20130627
  Serious: Yes (Hospitalization, Disabling)
  Sender: FDA-Public Use
  Company Number: PHHY2012LB054312

PATIENT
  Sex: Female

DRUGS (7)
  1. TASIGNA [Suspect]
     Indication: CHRONIC MYELOID LEUKAEMIA
     Dosage: 800 mg, QD
     Route: 048
     Dates: start: 2008
  2. TASIGNA [Suspect]
     Dosage: 400 mg, UNK
     Route: 048
     Dates: start: 2011
  3. MODURETIC [Concomitant]
     Dosage: 0.5 DF, UNK
     Route: 048
     Dates: start: 1996
  4. ZYLORIC [Concomitant]
     Dosage: 1 DF, daily
     Dates: start: 2008
  5. VESSEL DUE F [Concomitant]
     Dosage: UNK
     Route: 048
  6. SINVASTATINA [Concomitant]
     Route: 048
  7. ASPICOT [Concomitant]
     Route: 048

REACTIONS (3)
  - Localised infection [Recovered/Resolved with Sequelae]
  - Peripheral ischaemia [Unknown]
  - Anaemia [Recovered/Resolved]
